FAERS Safety Report 8507846-9 (Version None)
Quarter: 2012Q3

REPORT INFORMATION
  Report Type: 
  Country: None (occurrence: None)
  Receive Date: 20120713
  Receipt Date: 20120712
  Transmission Date: 20120928
  Serious: Yes (Other)
  Sender: FDA-Public Use
  Company Number: PHHO2009ES13501

PATIENT
  Sex: Male
  Weight: 79.3 kg

DRUGS (4)
  1. OMEPRAZOLE [Concomitant]
     Indication: PROPHYLAXIS
  2. ACZ885 [Suspect]
     Indication: GOUT
     Dosage: 100 MG, ONCE/SINGLE
     Route: 048
     Dates: start: 20090814
  3. EXFORGE [Concomitant]
     Indication: HYPERTENSION
  4. ALLOPURINOL [Concomitant]

REACTIONS (2)
  - BLADDER CANCER [None]
  - HAEMATURIA [None]
